FAERS Safety Report 15885627 (Version 1)
Quarter: 2019Q1

REPORT INFORMATION
  Report Type: Spontaneous
  Country: US (occurrence: US)
  Receive Date: 20190129
  Receipt Date: 20190129
  Transmission Date: 20190417
  Serious: No
  Sender: FDA-Public Use
  Company Number: US-BIOMARINAP-US-2019-121615

PATIENT
  Sex: Male

DRUGS (1)
  1. NAGLAZYME [Suspect]
     Active Substance: GALSULFASE
     Indication: MUCOPOLYSACCHARIDOSIS
     Dosage: 25 MILLIGRAM, QW
     Route: 042
     Dates: start: 20150403

REACTIONS (4)
  - Catheter site erythema [Unknown]
  - Catheter site swelling [Unknown]
  - Catheter site pruritus [Unknown]
  - Catheter site extravasation [Unknown]
